FAERS Safety Report 11119418 (Version 1)
Quarter: 2015Q2

REPORT INFORMATION
  Report Type: Spontaneous
  Country: GB (occurrence: GB)
  Receive Date: 20150518
  Receipt Date: 20150518
  Transmission Date: 20150821
  Serious: Yes (Other)
  Sender: FDA-Public Use
  Company Number: GB-ACTAVIS-2015-09879

PATIENT
  Age: 38 Year
  Sex: Female

DRUGS (2)
  1. GABAPENTIN (UNKNOWN) [Suspect]
     Active Substance: GABAPENTIN
     Indication: PAIN
     Dosage: 900 MG, TID; TABLET
     Route: 048
  2. METHADONE [Concomitant]
     Active Substance: METHADONE HYDROCHLORIDE
     Indication: PRODUCT USED FOR UNKNOWN INDICATION
     Dosage: 75 ML, DAILY
     Route: 065

REACTIONS (7)
  - Salivary hypersecretion [Unknown]
  - Extrapyramidal disorder [Unknown]
  - Speech disorder [Unknown]
  - Cholinergic syndrome [Unknown]
  - Sedation [Unknown]
  - Overdose [Unknown]
  - Joint stiffness [Unknown]
